FAERS Safety Report 11277504 (Version 2)
Quarter: 2015Q3

REPORT INFORMATION
  Report Type: Spontaneous
  Country: JP (occurrence: JP)
  Receive Date: 20150716
  Receipt Date: 20150728
  Transmission Date: 20151125
  Serious: Yes (Death, Hospitalization, Other)
  Sender: FDA-Public Use
  Company Number: PHHY2015JP083813

PATIENT
  Age: 72 Year
  Sex: Male

DRUGS (12)
  1. MAXACALCITOL [Suspect]
     Active Substance: MAXACALCITOL
     Indication: HYPERPHOSPHATAEMIA
  2. PREDNISOLONE. [Suspect]
     Active Substance: PREDNISOLONE
     Dosage: 40 MG PER DAY
     Route: 065
  3. MAXACALCITOL [Suspect]
     Active Substance: MAXACALCITOL
     Indication: HYPERPARATHYROIDISM
     Route: 065
  4. CINACALCET [Concomitant]
     Active Substance: CINACALCET
     Indication: HYPERPARATHYROIDISM
     Route: 065
  5. CINACALCET [Concomitant]
     Active Substance: CINACALCET
     Indication: HYPERPHOSPHATAEMIA
  6. LANTHANUM CARBONATE. [Concomitant]
     Active Substance: LANTHANUM CARBONATE
     Indication: HYPERPARATHYROIDISM
     Route: 065
  7. WARFARIN [Suspect]
     Active Substance: WARFARIN
     Indication: PRODUCT USED FOR UNKNOWN INDICATION
     Route: 065
     Dates: start: 200705
  8. PREDNISOLONE. [Suspect]
     Active Substance: PREDNISOLONE
     Indication: PYODERMA GANGRENOSUM
     Dosage: 20 MG, PER DAY
     Route: 065
  9. CICLOSPORIN [Concomitant]
     Active Substance: CYCLOSPORINE
     Indication: PYODERMA GANGRENOSUM
     Dosage: 150 MG, PER DAY
     Route: 065
  10. DIAPHENYLSULFONE [Concomitant]
     Indication: PYODERMA GANGRENOSUM
     Dosage: 50 MG, PER DAY
     Route: 065
  11. CALCIUM CARBONATE. [Concomitant]
     Active Substance: CALCIUM CARBONATE
     Indication: PRODUCT USED FOR UNKNOWN INDICATION
     Route: 065
  12. LANTHANUM CARBONATE. [Concomitant]
     Active Substance: LANTHANUM CARBONATE
     Indication: HYPERPHOSPHATAEMIA

REACTIONS (6)
  - Sepsis [Fatal]
  - Arterial stenosis [Unknown]
  - Calciphylaxis [Unknown]
  - Drug ineffective [Unknown]
  - Gas gangrene [Fatal]
  - Condition aggravated [Unknown]
